FAERS Safety Report 6283921-7 (Version None)
Quarter: 2009Q3

REPORT INFORMATION
  Report Type: 
  Country: None (occurrence: None)
  Receive Date: 20090722
  Receipt Date: 20090722
  Transmission Date: 20100115
  Serious: Yes (Other)
  Sender: FDA-Public Use
  Company Number: None

PATIENT
  Age: 46 Year
  Sex: Male
  Weight: 122.4712 kg

DRUGS (2)
  1. CRESTOR [Suspect]
     Indication: BLOOD CHOLESTEROL INCREASED
     Dosage: 10MG  ONCE DAILY PO
     Route: 048
     Dates: start: 20090605, end: 20090705
  2. CRESTOR [Suspect]
     Indication: BLOOD TRIGLYCERIDES INCREASED
     Dosage: 10MG  ONCE DAILY PO
     Route: 048
     Dates: start: 20090605, end: 20090705

REACTIONS (2)
  - FIBROMYALGIA [None]
  - PAIN IN EXTREMITY [None]
